FAERS Safety Report 12249042 (Version 1)
Quarter: 2016Q2

REPORT INFORMATION
  Report Type: Spontaneous
  Country: PH (occurrence: PH)
  Receive Date: 20160408
  Receipt Date: 20160408
  Transmission Date: 20160815
  Serious: Yes (Death, Hospitalization)
  Sender: FDA-Public Use
  Company Number: PH-009507513-1604PHL002337

PATIENT
  Age: 77 Year
  Sex: Female

DRUGS (2)
  1. CLOVIX (CLOPIDOGREL) [Concomitant]
     Indication: HYPERTENSION
     Dosage: UNK
     Dates: end: 2016
  2. JANUVIA [Suspect]
     Active Substance: SITAGLIPTIN PHOSPHATE
     Indication: DIABETES MELLITUS
     Dosage: 100 MG, 1 TABLET, ONCE A DAY
     Route: 048
     Dates: start: 2014, end: 2016

REACTIONS (2)
  - Death [Fatal]
  - Gastrointestinal neoplasm [Recovered/Resolved]

NARRATIVE: CASE EVENT DATE: 2016
